FAERS Safety Report 18979276 (Version 2)
Quarter: 2021Q1

REPORT INFORMATION
  Report Type: Spontaneous
  Country: US (occurrence: US)
  Receive Date: 20210308
  Receipt Date: 20210317
  Transmission Date: 20210420
  Serious: No
  Sender: FDA-Public Use
  Company Number: US-ASTRAZENECA-2021A102921

PATIENT
  Sex: Female
  Weight: 85.3 kg

DRUGS (3)
  1. BYDUREON [Suspect]
     Active Substance: EXENATIDE
     Indication: WEIGHT ABNORMAL
     Route: 058
     Dates: start: 202101
  2. BYDUREON [Suspect]
     Active Substance: EXENATIDE
     Indication: DIABETES MELLITUS
     Route: 058
     Dates: start: 202101
  3. NOVOLOG [Concomitant]
     Active Substance: INSULIN ASPART
     Dosage: 25 UNITS FOR EVERY MEAL

REACTIONS (7)
  - Injection site pain [Unknown]
  - Product dose omission issue [Unknown]
  - Device issue [Unknown]
  - Intentional device misuse [Unknown]
  - Injection site bruising [Unknown]
  - Injection site haemorrhage [Unknown]
  - Wrong technique in device usage process [Unknown]
